FAERS Safety Report 18644285 (Version 2)
Quarter: 2022Q4

REPORT INFORMATION
  Report Type: Spontaneous
  Country: US (occurrence: US)
  Receive Date: 20201221
  Receipt Date: 20221121
  Transmission Date: 20230112
  Serious: Yes (Other)
  Sender: FDA-Public Use
  Company Number: US-SAARTEMIS-SAC202012160238

PATIENT
  Age: 58 Year
  Sex: Female

DRUGS (2)
  1. ZANTAC [Suspect]
     Active Substance: RANITIDINE HYDROCHLORIDE
     Indication: Dyspepsia
     Dosage: 75 MG, FREQUENCY:OTHER
     Dates: start: 200401
  2. ZANTAC [Suspect]
     Active Substance: RANITIDINE HYDROCHLORIDE
     Dosage: 150 MG, FREQUENCY:OTHER
     Dates: end: 201705

REACTIONS (5)
  - Bladder cancer stage I, with cancer in situ [Recovered/Resolved]
  - Urethral cancer [Recovered/Resolved]
  - Ureteric cancer [Recovered/Resolved]
  - Metastases to lymph nodes [Recovered/Resolved]
  - Uterine cancer [Recovered/Resolved]

NARRATIVE: CASE EVENT DATE: 20150914
